FAERS Safety Report 4992888-0 (Version None)
Quarter: 2006Q2

REPORT INFORMATION
  Report Type: 
  Country: None (occurrence: None)
  Receive Date: 20060504
  Receipt Date: 20051019
  Transmission Date: 20061013
  Serious: Yes (Hospitalization)
  Sender: FDA-Public Use
  Company Number: US-MERCK-0510USA08227

PATIENT
  Age: 51 Year
  Sex: Male
  Weight: 100 kg

DRUGS (34)
  1. VIOXX [Suspect]
     Indication: ARTHRITIS
     Route: 048
     Dates: start: 20010919, end: 20021101
  2. ASPIRIN [Concomitant]
     Indication: PROPHYLAXIS
     Route: 065
     Dates: start: 20030101
  3. IBUPROFEN [Concomitant]
     Indication: PAIN
     Route: 065
     Dates: start: 19700101
  4. OXYCODONE [Concomitant]
     Indication: PAIN
     Route: 065
     Dates: start: 20020101
  5. PROPOXYPHENE HYDROCHLORIDE [Concomitant]
     Indication: PAIN
     Route: 065
     Dates: start: 20020101, end: 20020101
  6. PHENERGAN TABLETS/SUPPOSITORIES [Concomitant]
     Route: 065
  7. LOPERAMIDE HYDROCHLORIDE [Concomitant]
     Indication: DIARRHOEA
     Route: 065
  8. ZOCOR [Concomitant]
     Indication: BLOOD CHOLESTEROL INCREASED
     Route: 065
     Dates: start: 20000101, end: 20050801
  9. CEFACLOR [Concomitant]
     Indication: INFECTION
     Route: 065
  10. GUAIFENESIN [Concomitant]
     Indication: INFECTION
     Route: 065
  11. HYDROCODONE BITARTRATE [Concomitant]
     Indication: PAIN
     Route: 065
     Dates: start: 20020101
  12. HYDROCHLOROTHIAZIDE TABLETS (USP 23) [Concomitant]
     Indication: HYPERTENSION
     Route: 065
     Dates: start: 19980101
  13. METHOCARBAMOL [Concomitant]
     Indication: PAIN
     Route: 065
     Dates: start: 20010101
  14. AMBIEN [Concomitant]
     Indication: INSOMNIA
     Route: 065
  15. CELEBREX [Concomitant]
     Indication: PAIN
     Route: 065
     Dates: start: 20020501, end: 20020501
  16. IMITREX [Concomitant]
     Indication: MIGRAINE
     Route: 065
     Dates: start: 20000101, end: 20020101
  17. COMBIVENT [Concomitant]
     Indication: CHRONIC OBSTRUCTIVE PULMONARY DISEASE
     Route: 065
  18. TEMAZEPAM [Concomitant]
     Indication: INSOMNIA
     Route: 065
  19. NITROSTAT [Concomitant]
     Indication: CARDIAC DISORDER
     Route: 065
     Dates: start: 20030101
  20. NITROGLYCERIN PROLONGATE [Concomitant]
     Indication: HYPERTENSION
     Route: 065
     Dates: start: 20030101
  21. PLAVIX [Concomitant]
     Indication: CARDIAC DISORDER
     Route: 065
     Dates: start: 20000101, end: 20050801
  22. ALTACE [Concomitant]
     Indication: HYPERTENSION
     Route: 065
     Dates: start: 20020101, end: 20050801
  23. ATROVENT [Concomitant]
     Indication: CHRONIC OBSTRUCTIVE PULMONARY DISEASE
     Route: 065
  24. TRAZODONE HYDROCHLORIDE [Concomitant]
     Indication: DEPRESSION
     Route: 065
  25. ROBAXIN [Concomitant]
     Indication: PAIN
     Route: 065
  26. NIACIN [Concomitant]
     Indication: BLOOD CHOLESTEROL INCREASED
     Route: 065
     Dates: start: 20020101, end: 20020101
  27. TRICOR [Concomitant]
     Route: 065
     Dates: start: 20000101, end: 20050801
  28. DARVOCET [Concomitant]
     Indication: PAIN
     Route: 065
  29. PERCOCET [Concomitant]
     Route: 065
  30. DIOVAN [Concomitant]
     Route: 065
  31. ALLOPURINOL [Concomitant]
     Route: 065
  32. ADALAT [Concomitant]
     Route: 065
  33. LOTENSIN [Concomitant]
     Route: 065
  34. HUMIBID [Concomitant]
     Route: 065

REACTIONS (6)
  - ACUTE MYOCARDIAL INFARCTION [None]
  - CHEST DISCOMFORT [None]
  - CHEST PAIN [None]
  - CORONARY ARTERY STENOSIS [None]
  - SCROTAL MASS [None]
  - SPERMATOCELE [None]
